FAERS Safety Report 19405693 (Version 1)
Quarter: 2021Q2

REPORT INFORMATION
  Report Type: Other
  Country: FR (occurrence: FR)
  Receive Date: 20210611
  Receipt Date: 20210611
  Transmission Date: 20210717
  Serious: Yes (Other)
  Sender: FDA-Public Use
  Company Number: FR-ROCHE-2843655

PATIENT
  Age: 54 Year
  Sex: Female
  Weight: 58 kg

DRUGS (5)
  1. ATEZOLIZUMAB. [Suspect]
     Active Substance: ATEZOLIZUMAB
     Indication: TRIPLE NEGATIVE BREAST CANCER
     Dosage: ON 27/FEB/2020, SHE RECEIVED THE MOST RECENT DOSE
     Route: 041
     Dates: end: 20200227
  2. PACLITAXEL. [Suspect]
     Active Substance: PACLITAXEL
     Indication: TRIPLE NEGATIVE BREAST CANCER
     Route: 065
     Dates: end: 20200227
  3. NAB?PACLITAXEL [Suspect]
     Active Substance: PACLITAXEL
     Indication: TRIPLE NEGATIVE BREAST CANCER
     Route: 065
     Dates: end: 20210227
  4. EPIRUBICINE [Suspect]
     Active Substance: EPIRUBICIN
     Indication: TRIPLE NEGATIVE BREAST CANCER
     Route: 065
     Dates: end: 20140730
  5. CYCLOPHOSPHAMIDE. [Suspect]
     Active Substance: CYCLOPHOSPHAMIDE
     Indication: TRIPLE NEGATIVE BREAST CANCER
     Route: 065
     Dates: end: 20140730

REACTIONS (1)
  - Toxicity to various agents [Unknown]
